FAERS Safety Report 16700024 (Version 1)
Quarter: 2019Q3

REPORT INFORMATION
  Report Type: Spontaneous
  Country: US (occurrence: US)
  Receive Date: 20190813
  Receipt Date: 20190813
  Transmission Date: 20191004
  Serious: Yes (Life-Threatening, Hospitalization, Other)
  Sender: FDA-Public Use
  Company Number: US-AMGEN INC.-USASP2019129004

PATIENT
  Age: 41 Year
  Sex: Female

DRUGS (2)
  1. METOPROLOL. [Concomitant]
     Active Substance: METOPROLOL
     Indication: HYPERTENSION
     Dosage: UNK
  2. AIMOVIG [Suspect]
     Active Substance: ERENUMAB-AOOE
     Indication: MIGRAINE
     Dosage: 140 MILLIGRAM, QMO
     Route: 065
     Dates: start: 20190502

REACTIONS (8)
  - Enzyme level increased [Unknown]
  - Myocardial infarction [Unknown]
  - Pulmonary arterial hypertension [Unknown]
  - Fear of injection [Unknown]
  - Wrong technique in product usage process [Unknown]
  - Thrombosis [Unknown]
  - Vein collapse [Unknown]
  - Chest pain [Unknown]

NARRATIVE: CASE EVENT DATE: 2019
